FAERS Safety Report 25918147 (Version 1)
Quarter: 2025Q4

REPORT INFORMATION
  Report Type: Spontaneous
  Country: EU (occurrence: EU)
  Receive Date: 20251014
  Receipt Date: 20251014
  Transmission Date: 20260118
  Serious: Yes (Other)
  Sender: MYLAN
  Company Number: EU-SANDOZ-SDZ2025NO072109

PATIENT
  Age: 31 Year
  Sex: Female

DRUGS (1)
  1. IMATINIB [Suspect]
     Active Substance: IMATINIB
     Indication: Chronic myeloid leukaemia
     Dosage: 400 MILLIGRAM

REACTIONS (4)
  - Neutropenia [Unknown]
  - Disease progression [Unknown]
  - Product ineffective [Unknown]
  - Maternal exposure during pregnancy [Unknown]
